FAERS Safety Report 5679994-2 (Version None)
Quarter: 2008Q1

REPORT INFORMATION
  Report Type: 
  Country: None (occurrence: None)
  Receive Date: 20080325
  Receipt Date: 20080325
  Transmission Date: 20080703
  Serious: No
  Sender: FDA-Public Use
  Company Number: None

PATIENT
  Age: 80 Year
  Sex: Male
  Weight: 79.55 kg

DRUGS (1)
  1. AMPHOTERICIN B [Suspect]
     Dosage: 40MG EVERY DAY IV
     Route: 042
     Dates: start: 20070712, end: 20070714

REACTIONS (1)
  - RENAL FAILURE ACUTE [None]
